FAERS Safety Report 21260360 (Version 1)
Quarter: 2022Q3

REPORT INFORMATION
  Report Type: Spontaneous
  Country: FR (occurrence: FR)
  Receive Date: 20220826
  Receipt Date: 20220826
  Transmission Date: 20221027
  Serious: Yes (Life-Threatening, Other)
  Sender: FDA-Public Use
  Company Number: None

PATIENT
  Age: 60 Year
  Sex: Female
  Weight: 41 kg

DRUGS (2)
  1. TAXOTERE [Suspect]
     Active Substance: DOCETAXEL
     Indication: Bladder transitional cell carcinoma
     Dosage: 50 MG/M2 ; C1
     Dates: start: 20220622, end: 20220622
  2. TAXOTERE [Suspect]
     Active Substance: DOCETAXEL
     Dosage: 50 MG/M2; C2
     Dates: start: 20220706, end: 20220706

REACTIONS (3)
  - Starvation [Recovering/Resolving]
  - Shock [Recovered/Resolved]
  - Diarrhoea [Recovered/Resolved]

NARRATIVE: CASE EVENT DATE: 20220715
